FAERS Safety Report 9812877 (Version 2)
Quarter: 2014Q2

REPORT INFORMATION
  Report Type: Spontaneous
  Country: US (occurrence: None)
  Receive Date: 20140108
  Receipt Date: 20140401
  Transmission Date: 20141212
  Serious: Yes (Hospitalization)
  Sender: FDA-Public Use
  Company Number: 2013-US-005163

PATIENT
  Age: 61 Year
  Sex: Male
  Weight: 72.1 kg

DRUGS (2)
  1. XYREM [Suspect]
     Indication: CATAPLEXY
     Route: 048
     Dates: start: 20130304, end: 2013
  2. XYREM [Suspect]
     Indication: NARCOLEPSY
     Route: 048
     Dates: start: 20130304, end: 2013

REACTIONS (6)
  - Myocardial infarction [None]
  - Cataplexy [None]
  - Somnambulism [None]
  - Sleep-related eating disorder [None]
  - Confusional state [None]
  - Parasomnia [None]
